FAERS Safety Report 25656565 (Version 1)
Quarter: 2025Q3

REPORT INFORMATION
  Report Type: Other
  Country: CA (occurrence: CA)
  Receive Date: 20250807
  Receipt Date: 20250807
  Transmission Date: 20251020
  Serious: Yes (Death)
  Sender: BRECKENRIDGE PHARMACEUTICAL, INC.
  Company Number: CA-Breckenridge Pharmaceutical, Inc.-2182067

PATIENT
  Age: 3 Year
  Sex: Female

DRUGS (1)
  1. METHADONE [Suspect]
     Active Substance: METHADONE HYDROCHLORIDE

REACTIONS (4)
  - Encephalitis [Fatal]
  - Accidental exposure to product [Fatal]
  - Toxic encephalopathy [Fatal]
  - Toxicity to various agents [Fatal]
